FAERS Safety Report 9772437 (Version 1)
Quarter: 2013Q4

REPORT INFORMATION
  Report Type: Spontaneous
  Country: US (occurrence: None)
  Receive Date: 20131218
  Receipt Date: 20131218
  Transmission Date: 20140711
  Serious: Yes (Other)
  Sender: FDA-Public Use
  Company Number: None

PATIENT
  Sex: Female
  Weight: 82 kg

DRUGS (2)
  1. NTG HEALTHY SKIN EYE CREAM [Suspect]
     Indication: SKIN WRINKLING
     Dosage: PEARL SIZE, 2XDAY
     Route: 061
  2. NTG DEEP CLEAN INVIG DAILY CLEANSER [Suspect]
     Dosage: 3 PUMP SIZE, 2XDAY
     Route: 061
     Dates: start: 20100401

REACTIONS (2)
  - Expired drug administered [None]
  - Basal cell carcinoma [None]
